FAERS Safety Report 4812422-5 (Version None)
Quarter: 2005Q4

REPORT INFORMATION
  Report Type: 
  Country: None (occurrence: None)
  Receive Date: 20051028
  Receipt Date: 20050127
  Transmission Date: 20060501
  Serious: No
  Sender: FDA-Public Use
  Company Number: US-GLAXOSMITHKLINE-A0542651A

PATIENT
  Age: 63 Year
  Sex: Male

DRUGS (7)
  1. ADVAIR DISKUS 100/50 [Suspect]
     Indication: DRUG USE FOR UNKNOWN INDICATION
     Route: 055
  2. HYTRIN [Concomitant]
  3. PROSCAR [Concomitant]
  4. BENICAR [Concomitant]
  5. COREG [Concomitant]
  6. PRILOSEC [Concomitant]
  7. MINOCYCLIN [Concomitant]

REACTIONS (1)
  - CHEST PAIN [None]
